FAERS Safety Report 14547324 (Version 1)
Quarter: 2018Q1

REPORT INFORMATION
  Report Type: Spontaneous
  Country: GB (occurrence: GB)
  Receive Date: 20180219
  Receipt Date: 20180219
  Transmission Date: 20180509
  Serious: Yes (Hospitalization, Other)
  Sender: FDA-Public Use
  Company Number: GB-ASTELLAS-2018US008265

PATIENT
  Age: 62 Year
  Sex: Male

DRUGS (4)
  1. PREDNISOLONE. [Suspect]
     Active Substance: PREDNISOLONE
     Indication: LIVER TRANSPLANT
     Dosage: UNK UNK, UNKNOWN FREQ.
     Route: 065
  2. TACROLIMUS. [Suspect]
     Active Substance: TACROLIMUS
     Indication: LIVER TRANSPLANT
     Dosage: UNK UNK, UNKNOWN FREQ.
     Route: 065
  3. AZATHIOPRINE. [Suspect]
     Active Substance: AZATHIOPRINE
     Indication: LIVER TRANSPLANT
     Dosage: UNK UNK, UNKNOWN FREQ.
     Route: 065
  4. MYCOPHENOLATE MOFETIL. [Suspect]
     Active Substance: MYCOPHENOLATE MOFETIL
     Indication: LIVER TRANSPLANT
     Dosage: UNK UNK, UNKNOWN FREQ.
     Route: 065

REACTIONS (20)
  - Biliary tract disorder [Unknown]
  - Gastritis [Unknown]
  - Acute kidney injury [Unknown]
  - Cytomegalovirus infection [Recovered/Resolved]
  - Bronchopulmonary aspergillosis [Unknown]
  - Enterococcal infection [Unknown]
  - Malnutrition [Unknown]
  - Liver function test increased [Not Recovered/Not Resolved]
  - Cholestasis [Recovered/Resolved]
  - Viral infection [Unknown]
  - Escherichia sepsis [Unknown]
  - Diarrhoea [Unknown]
  - Central nervous system fungal infection [Unknown]
  - Anuria [Unknown]
  - Proctitis infectious [Recovered/Resolved]
  - Nodular regenerative hyperplasia [Unknown]
  - Liver function test increased [Unknown]
  - Escherichia infection [Unknown]
  - Candida infection [Unknown]
  - Aspergillus infection [Unknown]
